FAERS Safety Report 9845922 (Version 2)
Quarter: 2014Q1

REPORT INFORMATION
  Report Type: Report from Study
  Country: US (occurrence: US)
  Receive Date: 20140127
  Receipt Date: 20140204
  Transmission Date: 20141002
  Serious: Yes (Hospitalization, Other)
  Sender: FDA-Public Use
  Company Number: PHEH2014US001630

PATIENT
  Age: 79 Year
  Sex: Female

DRUGS (4)
  1. TOBI [Suspect]
     Indication: BRONCHIECTASIS
     Dosage: 300 MG/5 ML, BID
     Route: 055
     Dates: start: 201312
  2. TOBI [Suspect]
     Indication: PSEUDOMONAS INFECTION
  3. TOBI [Suspect]
     Indication: MYCOBACTERIAL INFECTION
  4. TOBI [Suspect]
     Indication: LUNG DISORDER

REACTIONS (3)
  - Hip fracture [Recovering/Resolving]
  - Fall [Recovering/Resolving]
  - Disorientation [Unknown]
